FAERS Safety Report 5646531-8 (Version None)
Quarter: 2008Q1

REPORT INFORMATION
  Report Type: 
  Country: None (occurrence: None)
  Receive Date: 20080303
  Receipt Date: 20080220
  Transmission Date: 20080703
  Serious: Yes (Other)
  Sender: FDA-Public Use
  Company Number: PHBS2007US21373

PATIENT
  Sex: Male

DRUGS (3)
  1. LIORESAL [Suspect]
     Indication: MUSCLE SPASTICITY
     Dosage: 435 MCG/DAY
     Route: 037
  2. LIORESAL [Suspect]
     Dosage: 396 MCG/DAY
     Route: 037
  3. BACLOFEN [Suspect]
     Indication: MUSCLE SPASTICITY
     Route: 048

REACTIONS (3)
  - MUSCLE SPASTICITY [None]
  - PAIN [None]
  - PYREXIA [None]
